FAERS Safety Report 19585145 (Version 1)
Quarter: 2021Q3

REPORT INFORMATION
  Report Type: Spontaneous
  Country: DK (occurrence: DK)
  Receive Date: 20210721
  Receipt Date: 20210721
  Transmission Date: 20211014
  Serious: Yes (Other)
  Sender: FDA-Public Use
  Company Number: DK-SUN PHARMACEUTICAL INDUSTRIES LTD-2021R1-303118

PATIENT

DRUGS (2)
  1. FLECAINIDE [Suspect]
     Active Substance: FLECAINIDE
     Indication: FOETAL EXPOSURE TIMING UNSPECIFIED
     Dosage: 150 MILLIGRAM, BID
     Route: 064
  2. DIGOXIN. [Suspect]
     Active Substance: DIGOXIN
     Indication: FOETAL EXPOSURE TIMING UNSPECIFIED
     Dosage: 250 MICROGRAM, DAILY
     Route: 064

REACTIONS (5)
  - Pericardial effusion [Unknown]
  - Skin oedema [Unknown]
  - Ascites [Unknown]
  - Foetal exposure during pregnancy [Unknown]
  - Drug ineffective [Unknown]
